FAERS Safety Report 7962186-1 (Version None)
Quarter: 2011Q4

REPORT INFORMATION
  Report Type: 
  Country: None (occurrence: None)
  Receive Date: 20111207
  Receipt Date: 20111128
  Transmission Date: 20120403
  Serious: Yes (Other)
  Sender: FDA-Public Use
  Company Number: PHEH2011US010304

PATIENT
  Sex: Female

DRUGS (3)
  1. LORAZEPAM [Concomitant]
     Indication: ANXIETY
     Dosage: 0.5 MG, PRN
  2. LIPITOR [Concomitant]
     Dosage: 1 DF (20 MG), QD (PER NIGHT)
  3. DIOVAN HCT [Suspect]
     Dosage: 1 DF, QD (PER NIGHT)

REACTIONS (3)
  - JOINT DISLOCATION [None]
  - ARTHRITIS [None]
  - WRONG TECHNIQUE IN DRUG USAGE PROCESS [None]
